FAERS Safety Report 18155233 (Version 5)
Quarter: 2022Q3

REPORT INFORMATION
  Report Type: Spontaneous
  Country: US (occurrence: US)
  Receive Date: 20200817
  Receipt Date: 20220912
  Transmission Date: 20221027
  Serious: No
  Sender: FDA-Public Use
  Company Number: US-ALLERGAN-2025857US

PATIENT
  Sex: Male

DRUGS (5)
  1. ANDRODERM [Suspect]
     Active Substance: TESTOSTERONE
     Indication: Blood testosterone decreased
     Dosage: 4 MG, QD
     Route: 061
     Dates: start: 2007
  2. ANDRODERM [Suspect]
     Active Substance: TESTOSTERONE
     Indication: Blood testosterone decreased
     Dosage: 4 MG
     Route: 061
  3. AQUAPHOR HEALING [Suspect]
     Active Substance: PETROLATUM
     Indication: Application site pruritus
  4. AQUAPHOR HEALING [Suspect]
     Active Substance: PETROLATUM
     Indication: Application site erythema
  5. AQUAPHOR HEALING [Suspect]
     Active Substance: PETROLATUM
     Indication: Application site urticaria

REACTIONS (12)
  - Thyroid hormones decreased [Recovered/Resolved]
  - General physical condition abnormal [Recovered/Resolved]
  - Drug interaction [Unknown]
  - Skin exfoliation [Unknown]
  - Dry throat [Unknown]
  - Application site urticaria [Recovered/Resolved]
  - Application site dryness [Unknown]
  - Application site irritation [Recovered/Resolved]
  - Drug ineffective [Unknown]
  - Pruritus [Unknown]
  - Product physical issue [Unknown]
  - Fatigue [Unknown]
